FAERS Safety Report 4343006-3 (Version None)
Quarter: 2004Q2

REPORT INFORMATION
  Report Type: 
  Country: None (occurrence: None)
  Receive Date: 20040421
  Receipt Date: 20040413
  Transmission Date: 20050107
  Serious: Yes (Disabling)
  Sender: FDA-Public Use
  Company Number: PHFR2004GB01766

PATIENT
  Age: 69 Year
  Sex: Female

DRUGS (3)
  1. ZOMETA [Suspect]
     Indication: METASTASES TO BONE
     Dosage: 4 MG/DAY
     Route: 042
     Dates: start: 20040302
  2. ARIMIDEX [Concomitant]
     Route: 048
  3. CALCICHEW [Concomitant]
     Dates: start: 20040302

REACTIONS (3)
  - BLOOD CALCIUM DECREASED [None]
  - FLUID RETENTION [None]
  - PAIN [None]
